FAERS Safety Report 25547898 (Version 5)
Quarter: 2025Q3

REPORT INFORMATION
  Report Type: Spontaneous
  Country: CN (occurrence: CN)
  Receive Date: 20250714
  Receipt Date: 20250903
  Transmission Date: 20251020
  Serious: Yes (Life-Threatening, Other)
  Sender: ROCHE
  Company Number: CN-ROCHE-10000335582

PATIENT
  Age: 71 Year
  Sex: Male

DRUGS (8)
  1. TECENTRIQ [Suspect]
     Active Substance: ATEZOLIZUMAB
     Indication: Hepatic cancer
     Route: 065
     Dates: start: 20250612
  2. TECENTRIQ [Suspect]
     Active Substance: ATEZOLIZUMAB
     Route: 065
     Dates: start: 20250709
  3. AVASTIN [Suspect]
     Active Substance: BEVACIZUMAB
     Indication: Hepatic cancer
     Route: 065
     Dates: start: 20250612
  4. LENVATINIB [Concomitant]
     Active Substance: LENVATINIB
  5. TISLELIZUMAB [Concomitant]
     Active Substance: TISLELIZUMAB
     Dates: start: 202408
  6. CAMRELIZUMAB [Concomitant]
     Active Substance: CAMRELIZUMAB
     Dates: start: 20250424
  7. RIVOCERANIB [Concomitant]
     Active Substance: RIVOCERANIB
     Dates: start: 20250424
  8. DENOSUMAB [Concomitant]
     Active Substance: DENOSUMAB
     Dates: start: 20250609

REACTIONS (13)
  - Liver carcinoma ruptured [Recovered/Resolved]
  - Suspected product quality issue [Unknown]
  - Red blood cell count decreased [Recovering/Resolving]
  - Haemoglobin decreased [Recovering/Resolving]
  - Blood calcium decreased [Unknown]
  - Blood creatinine increased [Recovered/Resolved]
  - Blood uric acid increased [Recovering/Resolving]
  - Bile acids increased [Unknown]
  - Blood albumin decreased [Recovering/Resolving]
  - White blood cell count increased [Not Recovered/Not Resolved]
  - Neutrophil count increased [Not Recovered/Not Resolved]
  - Lymphocyte percentage decreased [Not Recovered/Not Resolved]
  - Lymphocyte count decreased [Not Recovered/Not Resolved]

NARRATIVE: CASE EVENT DATE: 20250702
